FAERS Safety Report 12285348 (Version 1)
Quarter: 2016Q2

REPORT INFORMATION
  Report Type: Spontaneous
  Country: UA (occurrence: UA)
  Receive Date: 20160420
  Receipt Date: 20160420
  Transmission Date: 20160815
  Serious: Yes (Other)
  Sender: FDA-Public Use
  Company Number: UA-TEVA-650855ISR

PATIENT
  Age: 7 Year
  Sex: Female

DRUGS (1)
  1. SUMAMED [Suspect]
     Active Substance: AZITHROMYCIN ANHYDROUS
     Indication: TONSILLITIS
     Dosage: 1 DOSAGE FORM= 100 MG/5 ML
     Route: 048
     Dates: start: 20160208

REACTIONS (3)
  - Ear infection [Unknown]
  - Drug ineffective [Unknown]
  - Tympanic membrane disorder [Unknown]
